FAERS Safety Report 12569011 (Version 1)
Quarter: 2016Q3

REPORT INFORMATION
  Report Type: Spontaneous
  Country: BR (occurrence: BR)
  Receive Date: 20160719
  Receipt Date: 20160719
  Transmission Date: 20161109
  Serious: Yes (Other)
  Sender: FDA-Public Use
  Company Number: BR-ABBVIE-16P-020-1679468-00

PATIENT
  Age: 6 Month
  Sex: Male

DRUGS (1)
  1. KLARICID [Suspect]
     Active Substance: CLARITHROMYCIN
     Indication: PNEUMONIA
     Route: 065

REACTIONS (5)
  - General physical health deterioration [Unknown]
  - Product odour abnormal [Unknown]
  - Vomiting [Unknown]
  - Product taste abnormal [Unknown]
  - Drug ineffective [Unknown]
